FAERS Safety Report 9662431 (Version 2)
Quarter: 2013Q4

REPORT INFORMATION
  Report Type: Spontaneous
  Country: US (occurrence: US)
  Receive Date: 20131031
  Receipt Date: 20131031
  Transmission Date: 20140711
  Serious: No
  Sender: FDA-Public Use
  Company Number: US-PURDUE-USA-2010-0048203

PATIENT
  Age: 52 Year
  Sex: Female

DRUGS (1)
  1. OXYCONTIN (NDA 22-272) [Suspect]
     Indication: PAIN
     Dosage: 80 MG, DAILY
     Dates: start: 201008

REACTIONS (8)
  - Dihydrotestosterone increased [Unknown]
  - Alopecia [Unknown]
  - Pain [Unknown]
  - Constipation [Unknown]
  - Crying [Unknown]
  - Depression [Unknown]
  - Drug effect decreased [Unknown]
  - Drug effect delayed [Unknown]
